FAERS Safety Report 9845000 (Version 1)
Quarter: 2014Q1

REPORT INFORMATION
  Report Type: Spontaneous
  Country: US (occurrence: None)
  Receive Date: 20140123
  Receipt Date: 20140123
  Transmission Date: 20141002
  Serious: Yes (Hospitalization, Disabling)
  Sender: FDA-Public Use
  Company Number: None

PATIENT
  Age: 32 Year
  Sex: Female
  Weight: 61.24 kg

DRUGS (1)
  1. MIRENA IUD BAYER [Suspect]
     Indication: CONTRACEPTION
     Route: 067
     Dates: start: 20121004, end: 20140120

REACTIONS (19)
  - Loss of consciousness [None]
  - Blood glucose fluctuation [None]
  - Palpitations [None]
  - Mood swings [None]
  - Dyspareunia [None]
  - Loss of libido [None]
  - Vaginal haemorrhage [None]
  - Headache [None]
  - Back pain [None]
  - Abdominal distension [None]
  - Muscle spasms [None]
  - Abdominal pain [None]
  - Nausea [None]
  - Breast tenderness [None]
  - Pain [None]
  - Insomnia [None]
  - Tympanic membrane perforation [None]
  - Nightmare [None]
  - Ear infection [None]
